FAERS Safety Report 8805371 (Version 2)
Quarter: 2012Q4

REPORT INFORMATION
  Report Type: 
  Country: US (occurrence: US)
  Receive Date: 20120924
  Receipt Date: 20121105
  Transmission Date: 20130627
  Serious: No
  Sender: FDA-Public Use
  Company Number: US-PFIZER INC-2012235115

PATIENT
  Age: 52 Year
  Sex: Female
  Weight: 101 kg

DRUGS (12)
  1. LYRICA [Suspect]
     Indication: FIBROMYALGIA
     Dosage: 300 mg, 2x/day
     Route: 048
  2. LYRICA [Suspect]
     Indication: NEUROPATHY PERIPHERAL
     Dosage: 300 mg, 2x/day
  3. LYRICA [Suspect]
     Indication: LYME DISEASE
  4. VICODIN [Concomitant]
     Indication: PAIN
     Dosage: UNK (on and off)
  5. VICODIN [Concomitant]
     Dosage: 2x7.5/325mg tablets, 3x/day
  6. FENTANYL [Concomitant]
     Indication: PAIN
     Dosage: 50 ug, every 3 days
     Route: 062
  7. KLONOPIN [Concomitant]
     Indication: NERVOUS SYSTEM DISORDER
     Dosage: 1 mg, 3x/day
  8. KLONOPIN [Concomitant]
     Indication: ANXIETY ATTACK
  9. KLONOPIN [Concomitant]
     Indication: STRESS
  10. AMBIEN [Concomitant]
     Indication: SLEEP PROBLEM
     Dosage: 10 mg, daily
  11. ZANAFLEX [Concomitant]
     Indication: MUSCLE SPASM
     Dosage: 6 mg, 3x/day
  12. PRILOSEC [Concomitant]
     Indication: HIATAL HERNIA
     Dosage: 2 x 20 mg in a day, UNK

REACTIONS (10)
  - Drug ineffective [Unknown]
  - Skin disorder [Not Recovered/Not Resolved]
  - Skin discolouration [Not Recovered/Not Resolved]
  - Blood cholesterol increased [Unknown]
  - Drug hypersensitivity [Unknown]
  - Weight increased [Unknown]
  - Drug resistance [Unknown]
  - Myalgia [Unknown]
  - Hypoaesthesia [Unknown]
  - Nervous system disorder [Unknown]
